FAERS Safety Report 8303767-5 (Version None)
Quarter: 2012Q2

REPORT INFORMATION
  Report Type: 
  Country: None (occurrence: None)
  Receive Date: 20120418
  Receipt Date: 20120329
  Transmission Date: 20120825
  Serious: Yes (Other)
  Sender: FDA-Public Use
  Company Number: 2012PROUSA01228

PATIENT
  Age: 65 Year
  Sex: Male

DRUGS (1)
  1. PROVENGE [Suspect]
     Indication: PROSTATE CANCER METASTATIC
     Dosage: 250 ML, SINGLE, INTRAVENOUS
     Route: 042
     Dates: start: 20120315, end: 20120315

REACTIONS (7)
  - HAEMOGLOBIN DECREASED [None]
  - CHILLS [None]
  - SEPSIS [None]
  - GASTROINTESTINAL DISORDER [None]
  - HEART RATE INCREASED [None]
  - BLOOD PRESSURE DECREASED [None]
  - HAEMATOCRIT DECREASED [None]
